FAERS Safety Report 13020517 (Version 2)
Quarter: 2017Q1

REPORT INFORMATION
  Report Type: Spontaneous
  Country: US (occurrence: US)
  Receive Date: 20161212
  Receipt Date: 20170208
  Transmission Date: 20170428
  Serious: No
  Sender: FDA-Public Use
  Company Number: US-009507513-1611USA009911

PATIENT
  Age: 61 Year
  Sex: Male

DRUGS (1)
  1. ISENTRESS [Suspect]
     Active Substance: RALTEGRAVIR POTASSIUM
     Indication: HIV INFECTION
     Route: 048

REACTIONS (3)
  - Myalgia [Recovered/Resolved]
  - Blood creatine phosphokinase abnormal [Recovered/Resolved]
  - Arthralgia [Recovered/Resolved]
